FAERS Safety Report 8467489-2 (Version None)
Quarter: 2012Q2

REPORT INFORMATION
  Report Type: 
  Country: None (occurrence: None)
  Receive Date: 20120620
  Receipt Date: 20120612
  Transmission Date: 20120825
  Serious: Yes (Hospitalization, Other)
  Sender: FDA-Public Use
  Company Number: 2012032618

PATIENT
  Age: 19 Year
  Sex: Female

DRUGS (1)
  1. STIMATE [Suspect]
     Indication: VON WILLEBRAND'S DISEASE
     Dosage: (CHALLENGE DOSE TWO WEEKS AGO NASAL)
     Route: 045

REACTIONS (3)
  - CONVULSION [None]
  - NAUSEA [None]
  - HYPONATRAEMIA [None]
